FAERS Safety Report 10263021 (Version 2)
Quarter: 2014Q2

REPORT INFORMATION
  Report Type: Spontaneous
  Country: US (occurrence: US)
  Receive Date: 20140626
  Receipt Date: 20140626
  Transmission Date: 20141212
  Serious: No
  Sender: FDA-Public Use
  Company Number: US-MYLANLABS-2013S1026990

PATIENT
  Age: 45 Year
  Sex: Female
  Weight: 127.01 kg

DRUGS (3)
  1. CLOZAPINE TABLETS [Suspect]
     Indication: SCHIZOPHRENIA, PARANOID TYPE
     Route: 048
  2. CLOZAPINE TABLETS [Suspect]
     Indication: PSYCHOTIC DISORDER
     Route: 048
  3. CELEXA [Concomitant]
     Route: 048

REACTIONS (1)
  - Antipsychotic drug level above therapeutic [Not Recovered/Not Resolved]
